FAERS Safety Report 6588331-0 (Version None)
Quarter: 2010Q1

REPORT INFORMATION
  Report Type: 
  Country: None (occurrence: None)
  Receive Date: 20100218
  Receipt Date: 20100209
  Transmission Date: 20100710
  Serious: Yes (Hospitalization)
  Sender: FDA-Public Use
  Company Number: US-ROCHE-677467

PATIENT
  Age: 66 Year
  Sex: Male
  Weight: 92.9 kg

DRUGS (5)
  1. BEVACIZUMAB [Suspect]
     Route: 065
     Dates: start: 20091015
  2. BEVACIZUMAB [Suspect]
     Dosage: LAST DOSE: 10 DEC 09. DAY 1
     Route: 065
     Dates: start: 20091210, end: 20091224
  3. SORAFENIB [Suspect]
     Route: 065
     Dates: start: 20091015
  4. SORAFENIB [Suspect]
     Dosage: LAST DOSE: 19 DEC 09. DAYS 1-5 AND 8-12
     Route: 065
     Dates: start: 20091210, end: 20091224
  5. PHOSPHORUS [Suspect]
     Indication: DRUG USE FOR UNKNOWN INDICATION
     Route: 065

REACTIONS (5)
  - BLOOD CREATININE INCREASED [None]
  - DEHYDRATION [None]
  - DIARRHOEA [None]
  - GASTROINTESTINAL NECROSIS [None]
  - HYPOCALCAEMIA [None]
